FAERS Safety Report 19275934 (Version 1)
Quarter: 2021Q2

REPORT INFORMATION
  Report Type: Spontaneous
  Country: IT (occurrence: IT)
  Receive Date: 20210519
  Receipt Date: 20210519
  Transmission Date: 20210717
  Serious: Yes (Other)
  Sender: FDA-Public Use
  Company Number: NVSC2021IT049726

PATIENT
  Age: 53 Year
  Sex: Female

DRUGS (2)
  1. RIVOTRIL [Concomitant]
     Active Substance: CLONAZEPAM
     Indication: ENCEPHALOPATHY NEONATAL
     Dosage: 1 DF
     Route: 048
  2. PARACETAMOL [Suspect]
     Active Substance: ACETAMINOPHEN
     Indication: PYREXIA
     Dosage: 500 MG
     Route: 048
     Dates: start: 20210130, end: 20210130

REACTIONS (3)
  - Oedema [Recovered/Resolved]
  - Loss of consciousness [Recovered/Resolved]
  - Syncope [Recovered/Resolved]

NARRATIVE: CASE EVENT DATE: 20210130
